FAERS Safety Report 23369963 (Version 1)
Quarter: 2024Q1

REPORT INFORMATION
  Report Type: Spontaneous
  Country: US (occurrence: US)
  Receive Date: 20240105
  Receipt Date: 20240105
  Transmission Date: 20240410
  Serious: Yes (Hospitalization)
  Sender: FDA-Public Use
  Company Number: US-ELI_LILLY_AND_COMPANY-US202401000294

PATIENT
  Sex: Female

DRUGS (1)
  1. TRULICITY [Suspect]
     Active Substance: DULAGLUTIDE
     Indication: Cardiac disorder
     Dosage: 0.75 MG, UNKNOWN
     Route: 065
     Dates: start: 2022

REACTIONS (5)
  - Urinary tract infection [Unknown]
  - Sepsis [Unknown]
  - Cardiac disorder [Unknown]
  - Off label use [Unknown]
  - Malaise [Recovering/Resolving]

NARRATIVE: CASE EVENT DATE: 20220101
